FAERS Safety Report 20515195 (Version 2)
Quarter: 2022Q1

REPORT INFORMATION
  Report Type: Spontaneous
  Country: US (occurrence: US)
  Receive Date: 20220224
  Receipt Date: 20220304
  Transmission Date: 20220424
  Serious: Yes (Death, Hospitalization, Other)
  Sender: FDA-Public Use
  Company Number: US-009507513-2202USA005753

PATIENT
  Sex: Female

DRUGS (3)
  1. KEYTRUDA [Suspect]
     Active Substance: PEMBROLIZUMAB
     Indication: Malignant melanoma
     Dosage: 200MG, EVERY 21 DAYS
     Route: 042
     Dates: start: 20210323, end: 202106
  2. HYOSCYAMINE [Concomitant]
     Active Substance: HYOSCYAMINE
  3. HALOPERIDOL LACTATE [Concomitant]
     Active Substance: HALOPERIDOL LACTATE

REACTIONS (2)
  - Death [Fatal]
  - Malignant neoplasm progression [Unknown]

NARRATIVE: CASE EVENT DATE: 20210101
